FAERS Safety Report 9511490 (Version 1)
Quarter: 2013Q3

REPORT INFORMATION
  Report Type: Report from Study
  Country: JP (occurrence: JP)
  Receive Date: 20130910
  Receipt Date: 20130910
  Transmission Date: 20140515
  Serious: Yes (Life-Threatening, Disabling, Other)
  Sender: FDA-Public Use
  Company Number: JP-GENZYME-THYM-1004120

PATIENT
  Age: 43 Year
  Sex: Male
  Weight: 66 kg

DRUGS (16)
  1. THYMOGLOBULIN [Suspect]
     Indication: ACUTE GRAFT VERSUS HOST DISEASE IN INTESTINE
     Dosage: 25 MG, QD
     Route: 065
     Dates: start: 20120711, end: 20120711
  2. THYMOGLOBULIN [Suspect]
     Dosage: 50 MG, QD
     Route: 065
     Dates: start: 20120725, end: 20120725
  3. THYMOGLOBULIN [Suspect]
     Dosage: 25 MG, QD
     Route: 065
     Dates: start: 20120730, end: 20120730
  4. TACROLIMUS [Suspect]
     Indication: PROPHYLAXIS AGAINST GRAFT VERSUS HOST DISEASE
     Dosage: UNK
     Route: 065
  5. TACROLIMUS [Suspect]
     Indication: ACUTE GRAFT VERSUS HOST DISEASE IN LIVER
  6. METHYLPREDNISOLONE [Concomitant]
     Indication: PROPHYLAXIS AGAINST GRAFT VERSUS HOST DISEASE
     Dosage: UNK
     Route: 065
  7. ZOVIRAX [Concomitant]
     Indication: INFECTION PROPHYLAXIS
     Dosage: UNK
     Route: 065
  8. GENINAX [Concomitant]
     Indication: INFECTION PROPHYLAXIS
     Dosage: UNK
     Route: 065
     Dates: end: 20120727
  9. MYCOPHENOLATE MOFETIL [Concomitant]
     Indication: PROPHYLAXIS AGAINST GRAFT VERSUS HOST DISEASE
     Dosage: UNK
     Route: 065
     Dates: end: 20120713
  10. CYCLOSPORINE [Concomitant]
     Indication: PROPHYLAXIS AGAINST GRAFT VERSUS HOST DISEASE
     Dosage: UNK
     Route: 065
     Dates: end: 20120803
  11. ITRIZOLE [Concomitant]
     Indication: INFECTION PROPHYLAXIS
     Dosage: UNK
     Route: 065
  12. FEBURIC [Concomitant]
     Indication: HYPERGLYCAEMIA
     Dosage: UNK
     Route: 065
     Dates: end: 20120817
  13. AMLODIPINE [Concomitant]
     Indication: HYPERTENSION
     Dosage: UNK
     Route: 065
  14. DENOSINE [Concomitant]
     Indication: INFECTION PROPHYLAXIS
     Dosage: UNK
     Route: 065
     Dates: start: 20120713, end: 20120802
  15. FIRSTCIN [Concomitant]
     Indication: INFECTION PROPHYLAXIS
     Dosage: UNK
     Route: 065
     Dates: start: 20120813, end: 20120905
  16. MICAMLO [Concomitant]
     Indication: HYPERTENSION
     Dosage: UNK
     Route: 065
     Dates: end: 20120824

REACTIONS (3)
  - Acute graft versus host disease in intestine [Unknown]
  - Renal disorder [Not Recovered/Not Resolved]
  - Acute graft versus host disease in liver [Not Recovered/Not Resolved]
